FAERS Safety Report 9304834 (Version 1)
Quarter: 2013Q2

REPORT INFORMATION
  Report Type: Spontaneous
  Country: US (occurrence: None)
  Receive Date: 20130521
  Receipt Date: 20130521
  Transmission Date: 20140414
  Serious: Yes (Hospitalization)
  Sender: FDA-Public Use
  Company Number: None

PATIENT
  Age: 59 Year
  Sex: Female

DRUGS (5)
  1. TECFIDERA [Suspect]
     Indication: MULTIPLE SCLEROSIS
     Route: 048
     Dates: start: 20130506, end: 20130514
  2. NAMENDA [Concomitant]
  3. LITHIUM [Concomitant]
  4. SERTRALINE [Concomitant]
  5. SEROQUEL [Concomitant]

REACTIONS (10)
  - Pruritus [None]
  - Nausea [None]
  - Rash [None]
  - Rash [None]
  - Rash [None]
  - Rash [None]
  - Rash [None]
  - Rash pruritic [None]
  - Confusional state [None]
  - Balance disorder [None]
